FAERS Safety Report 9797962 (Version 2)
Quarter: 2014Q1

REPORT INFORMATION
  Report Type: Spontaneous
  Country: NL (occurrence: NL)
  Receive Date: 20140106
  Receipt Date: 20140106
  Transmission Date: 20141002
  Serious: Yes (Disabling)
  Sender: FDA-Public Use
  Company Number: PHHY2013NL137359

PATIENT
  Age: 78 Year
  Sex: Male

DRUGS (2)
  1. TOBI [Suspect]
     Dosage: 300 MG, UNK
     Route: 055
     Dates: start: 20130910, end: 20131008
  2. TOBI [Suspect]
     Dosage: 300 MG, UNK
     Route: 055
     Dates: start: 20131105

REACTIONS (3)
  - Dyspnoea [Recovered/Resolved with Sequelae]
  - Sputum increased [Not Recovered/Not Resolved]
  - Productive cough [Unknown]
